FAERS Safety Report 8244795-8 (Version None)
Quarter: 2012Q1

REPORT INFORMATION
  Report Type: 
  Country: None (occurrence: None)
  Receive Date: 20120329
  Receipt Date: 20110413
  Transmission Date: 20120608
  Serious: No
  Sender: FDA-Public Use
  Company Number: US-MYLANLABS-2011S1007965

PATIENT
  Age: 53 Year
  Sex: Female
  Weight: 69.85 kg

DRUGS (7)
  1. SOMA [Concomitant]
     Indication: MUSCLE RELAXANT THERAPY
     Route: 048
  2. FENTANYL-100 [Suspect]
     Indication: PAIN IN EXTREMITY
     Dosage: CHANGED Q 72 HOURS.
     Route: 062
     Dates: start: 20110201
  3. PERCOCET [Concomitant]
     Indication: PAIN
     Dosage: 10MG/325MG
     Route: 048
  4. CYMBALTA [Concomitant]
     Indication: NEURALGIA
     Route: 048
  5. LYRICA [Concomitant]
     Indication: NEURALGIA
     Route: 048
  6. ELAVIL [Concomitant]
     Indication: NEURALGIA
     Route: 048
  7. FENTANYL-100 [Suspect]
     Indication: BACK PAIN
     Dosage: CHANGED Q 72 HOURS.
     Route: 062
     Dates: start: 20110201

REACTIONS (6)
  - BACK PAIN [None]
  - PAIN IN EXTREMITY [None]
  - APPLICATION SITE PRURITUS [None]
  - DRUG INEFFECTIVE [None]
  - DRUG WITHDRAWAL SYNDROME [None]
  - APPLICATION SITE ERYTHEMA [None]
